FAERS Safety Report 7648833-2 (Version None)
Quarter: 2011Q3

REPORT INFORMATION
  Report Type: 
  Country: None (occurrence: None)
  Receive Date: 20110801
  Receipt Date: 20110718
  Transmission Date: 20111222
  Serious: Yes (Other)
  Sender: FDA-Public Use
  Company Number: PHHY2011DE65921

PATIENT
  Sex: Female

DRUGS (7)
  1. BRISERIN [Suspect]
     Dosage: 0.5 DF, QD
     Route: 048
  2. BRISERIN [Suspect]
     Indication: HYPERTENSION
     Dosage: 1 DF, QD
     Route: 048
  3. METOPROLOL SUCCINATE [Concomitant]
     Indication: HYPERTENSION
     Dosage: UNK UKN, UNK
     Route: 048
  4. RAMIPRIL [Suspect]
  5. VITAMINS NOS [Concomitant]
     Dosage: UNK UKN, UNK
  6. GYNOKADIN GEL [Concomitant]
     Indication: MENOPAUSAL SYMPTOMS
     Dosage: UNK UKN, UNK
     Route: 061
  7. HORMONES AND RELATED AGENTS [Concomitant]
     Indication: MENOPAUSAL SYMPTOMS
     Dosage: UNK UKN, UNK
     Route: 048

REACTIONS (4)
  - SERUM SEROTONIN DECREASED [None]
  - COUGH [None]
  - DEPRESSED MOOD [None]
  - ALCOHOL INTOLERANCE [None]
